FAERS Safety Report 7842675-0 (Version None)
Quarter: 2011Q4

REPORT INFORMATION
  Report Type: 
  Country: None (occurrence: None)
  Receive Date: 20111025
  Receipt Date: 20111012
  Transmission Date: 20120403
  Serious: Yes (Hospitalization, Other)
  Sender: FDA-Public Use
  Company Number: US-BAYER-2011-027985

PATIENT
  Age: 29 Year
  Sex: Female
  Weight: 65 kg

DRUGS (3)
  1. AMOXICILLIN [Concomitant]
  2. YAZ [Suspect]
     Indication: PREMENSTRUAL SYNDROME
  3. YAZ [Suspect]
     Indication: ORAL CONTRACEPTION
     Dosage: UNK
     Dates: start: 20040101, end: 20091001

REACTIONS (10)
  - ABDOMINAL PAIN [None]
  - NAUSEA [None]
  - ABDOMINAL PAIN UPPER [None]
  - CHOLELITHIASIS [None]
  - PAIN [None]
  - VOMITING [None]
  - CHOLECYSTITIS CHRONIC [None]
  - DIARRHOEA [None]
  - GALLBLADDER INJURY [None]
  - GASTRITIS [None]
